FAERS Safety Report 11724217 (Version 1)
Quarter: 2015Q4

REPORT INFORMATION
  Report Type: Spontaneous
  Country: US (occurrence: US)
  Receive Date: 20151111
  Receipt Date: 20151111
  Transmission Date: 20160304
  Serious: No
  Sender: FDA-Public Use
  Company Number: US-PFIZER INC-2015375724

PATIENT
  Age: 56 Year
  Sex: Male
  Weight: 66 kg

DRUGS (3)
  1. ADDERALL [Interacting]
     Active Substance: AMPHETAMINE ASPARTATE\AMPHETAMINE SULFATE\DEXTROAMPHETAMINE SACCHARATE\DEXTROAMPHETAMINE SULFATE
     Indication: ATTENTION DEFICIT/HYPERACTIVITY DISORDER
     Dosage: UNK
  2. ASPIRIN. [Concomitant]
     Active Substance: ASPIRIN
     Indication: ANTICOAGULANT THERAPY
     Dosage: 325 MG, 1X/DAY, OCCASIONALLY IN THE MORNING
  3. VIAGRA [Suspect]
     Active Substance: SILDENAFIL CITRATE
     Indication: ERECTILE DYSFUNCTION
     Dosage: 100 MG, AS NEEDED
     Route: 048
     Dates: start: 20151006

REACTIONS (8)
  - Drug interaction [Unknown]
  - Drug effect incomplete [Not Recovered/Not Resolved]
  - Stress [Unknown]
  - Spider vein [Unknown]
  - Insomnia [Unknown]
  - Anorgasmia [Unknown]
  - Drug effect delayed [Not Recovered/Not Resolved]
  - Orgasm abnormal [Unknown]

NARRATIVE: CASE EVENT DATE: 20151006
